FAERS Safety Report 16723605 (Version 1)
Quarter: 2019Q3

REPORT INFORMATION
  Report Type: Spontaneous
  Country: IT (occurrence: IT)
  Receive Date: 20190821
  Receipt Date: 20190821
  Transmission Date: 20191005
  Serious: Yes (Hospitalization)
  Sender: FDA-Public Use
  Company Number: IT-ACCORD-152245

PATIENT
  Age: 73 Year
  Sex: Female
  Weight: 54 kg

DRUGS (1)
  1. METHOTREXATE. [Suspect]
     Active Substance: METHOTREXATE
     Indication: RHEUMATOID ARTHRITIS
     Route: 048

REACTIONS (5)
  - Pancytopenia [Not Recovered/Not Resolved]
  - Medication error [Unknown]
  - Portal fibrosis [Not Recovered/Not Resolved]
  - Ascites [Not Recovered/Not Resolved]
  - Non-cirrhotic portal hypertension [Not Recovered/Not Resolved]

NARRATIVE: CASE EVENT DATE: 20190314
